FAERS Safety Report 9210590 (Version 6)
Quarter: 2014Q2

REPORT INFORMATION
  Report Type: Report from Study
  Country: JP (occurrence: JP)
  Receive Date: 20130404
  Receipt Date: 20140428
  Transmission Date: 20141212
  Serious: Yes (Hospitalization)
  Sender: FDA-Public Use
  Company Number: JP-JNJFOC-20130400090

PATIENT
  Age: 67 Year
  Sex: Female
  Weight: 47 kg

DRUGS (32)
  1. STELARA [Suspect]
     Indication: ERYTHRODERMIC PSORIASIS
     Route: 058
     Dates: start: 20120618
  2. STELARA [Suspect]
     Indication: ERYTHRODERMIC PSORIASIS
     Route: 058
     Dates: start: 20120326
  3. STELARA [Suspect]
     Indication: ERYTHRODERMIC PSORIASIS
     Route: 058
     Dates: start: 20120910
  4. STELARA [Suspect]
     Indication: ERYTHRODERMIC PSORIASIS
     Route: 058
     Dates: start: 20121203
  5. STELARA [Suspect]
     Indication: ERYTHRODERMIC PSORIASIS
     Route: 058
     Dates: start: 20120225
  6. STELARA [Suspect]
     Indication: ERYTHRODERMIC PSORIASIS
     Route: 058
     Dates: start: 20120228
  7. NEOISCOTIN [Suspect]
     Indication: PROPHYLAXIS
     Route: 048
     Dates: start: 20120202, end: 20121129
  8. ANTEBATE [Concomitant]
     Indication: PSORIASIS
     Route: 062
  9. ANTEBATE [Concomitant]
     Indication: ERYTHRODERMIC PSORIASIS
     Route: 062
  10. ALLELOCK [Concomitant]
     Indication: PSORIASIS
     Route: 048
  11. ALLELOCK [Concomitant]
     Indication: ERYTHRODERMIC PSORIASIS
     Route: 048
  12. PYDOXAL [Concomitant]
     Indication: PROPHYLAXIS
     Route: 048
     Dates: end: 20121129
  13. DERMOVATE [Concomitant]
     Indication: PSORIASIS
     Route: 062
  14. DERMOVATE [Concomitant]
     Indication: ERYTHRODERMIC PSORIASIS
     Route: 062
  15. MYSER [Concomitant]
     Indication: PSORIASIS
     Route: 062
     Dates: start: 20120820
  16. MYSER [Concomitant]
     Indication: ERYTHRODERMIC PSORIASIS
     Route: 062
     Dates: start: 20120820
  17. TALION [Concomitant]
     Indication: PSORIASIS
     Route: 048
     Dates: start: 20120820
  18. TALION [Concomitant]
     Indication: ERYTHRODERMIC PSORIASIS
     Route: 048
     Dates: start: 20120820
  19. LITHIUM CARBONATE [Concomitant]
     Indication: BIPOLAR DISORDER
     Dates: end: 20130626
  20. ZYPREXA [Concomitant]
     Indication: BIPOLAR DISORDER
     Route: 048
     Dates: end: 20130626
  21. ROHYPNOL [Concomitant]
     Indication: INSOMNIA
     Dates: end: 20130626
  22. SEROQUEL [Concomitant]
     Indication: BIPOLAR DISORDER
     Dates: end: 20130626
  23. DORAL [Concomitant]
     Indication: INSOMNIA
     Route: 048
     Dates: end: 20130626
  24. LORAZEPAM [Concomitant]
     Indication: INSOMNIA
     Dates: end: 20130626
  25. HALCION [Concomitant]
     Indication: INSOMNIA
  26. SERENACE [Concomitant]
     Route: 048
     Dates: end: 20130626
  27. NIPOLAZIN [Concomitant]
     Indication: PSORIASIS
     Route: 048
  28. NIPOLAZIN [Concomitant]
     Indication: ERYTHRODERMIC PSORIASIS
     Route: 048
  29. ATARAX [Concomitant]
     Indication: PSORIASIS
     Route: 048
  30. ATARAX [Concomitant]
     Indication: ERYTHRODERMIC PSORIASIS
     Route: 048
  31. XYZAL [Concomitant]
     Indication: PSORIASIS
     Route: 048
  32. XYZAL [Concomitant]
     Indication: ERYTHRODERMIC PSORIASIS
     Route: 048

REACTIONS (2)
  - Hypomania [Not Recovered/Not Resolved]
  - Off label use [Unknown]
